FAERS Safety Report 24948906 (Version 2)
Quarter: 2025Q1

REPORT INFORMATION
  Report Type: Spontaneous
  Country: CO (occurrence: CO)
  Receive Date: 20250210
  Receipt Date: 20250306
  Transmission Date: 20250408
  Serious: Yes (Hospitalization, Other)
  Sender: PFIZER
  Company Number: CO-PFIZER INC-PV202500014186

PATIENT
  Age: 80 Year
  Sex: Male

DRUGS (1)
  1. VYNDAMAX [Suspect]
     Active Substance: TAFAMIDIS
     Indication: Cardiomegaly
     Dosage: 61 MG, DAILY
     Route: 048

REACTIONS (3)
  - Arrhythmia [Unknown]
  - Post procedural complication [Unknown]
  - Tachycardia [Unknown]

NARRATIVE: CASE EVENT DATE: 20250203
